FAERS Safety Report 5932056-9 (Version None)
Quarter: 2008Q4

REPORT INFORMATION
  Report Type: 
  Country: None (occurrence: None)
  Receive Date: 20081027
  Receipt Date: 20081015
  Transmission Date: 20090506
  Serious: Yes (Other)
  Sender: FDA-Public Use
  Company Number: JP-PFIZER INC-2008089315

PATIENT
  Age: 79 Year
  Sex: Male

DRUGS (3)
  1. ZYVOX [Suspect]
     Indication: STAPHYLOCOCCAL INFECTION
     Route: 042
  2. ALL OTHER THERAPEUTIC PRODUCTS [Concomitant]
     Route: 001
  3. BUROW'S SOLUTION [Concomitant]
     Route: 001

REACTIONS (1)
  - CHEST DISCOMFORT [None]
